FAERS Safety Report 11269558 (Version 1)
Quarter: 2015Q3

REPORT INFORMATION
  Report Type: Spontaneous
  Country: US (occurrence: US)
  Receive Date: 20150714
  Receipt Date: 20150714
  Transmission Date: 20151125
  Serious: No
  Sender: FDA-Public Use
  Company Number: US-ASTRAZENECA-2013SE81343

PATIENT
  Age: 70 Year
  Sex: Male
  Weight: 104.3 kg

DRUGS (10)
  1. BYDUREON [Suspect]
     Active Substance: EXENATIDE
     Indication: TYPE 2 DIABETES MELLITUS
     Route: 058
     Dates: start: 2013
  2. INSULIN [Concomitant]
     Active Substance: INSULIN NOS
     Dosage: 10 UNITS
  3. BYETTA [Suspect]
     Active Substance: EXENATIDE
     Indication: TYPE 2 DIABETES MELLITUS
     Dosage: STRENGTH- 2.5 MG/ML, 10 UG, TWO TIMES A DAY
     Route: 058
     Dates: start: 20060227, end: 20060308
  4. BYETTA [Suspect]
     Active Substance: EXENATIDE
     Indication: TYPE 2 DIABETES MELLITUS
     Route: 058
     Dates: end: 200602
  5. GLIMEPIRIDE. [Suspect]
     Active Substance: GLIMEPIRIDE
     Route: 048
  6. LANTUS [Suspect]
     Active Substance: INSULIN GLARGINE
     Route: 058
  7. BYETTA [Suspect]
     Active Substance: EXENATIDE
     Indication: TYPE 2 DIABETES MELLITUS
     Dosage: STRENGTH- 2.5 MG/ML, 5 UG, TWO TIMES A DAY
     Route: 058
     Dates: start: 200601, end: 200602
  8. PIOGLITAZONE HCL [Suspect]
     Active Substance: PIOGLITAZONE
     Route: 048
  9. IDUETECT [Concomitant]
     Dosage: 30/4 MG
  10. BYDUREON [Suspect]
     Active Substance: EXENATIDE
     Indication: TYPE 2 DIABETES MELLITUS
     Dosage: 5MCG,2MG
     Route: 058
     Dates: start: 200601, end: 201502

REACTIONS (10)
  - Lethargy [Not Recovered/Not Resolved]
  - Nausea [Recovered/Resolved]
  - Wrong technique in product usage process [Unknown]
  - Blood glucose decreased [Recovered/Resolved]
  - Urticaria [Not Recovered/Not Resolved]
  - Product quality issue [Unknown]
  - Anxiety [Recovered/Resolved]
  - Decreased appetite [Not Recovered/Not Resolved]
  - Weight decreased [Unknown]
  - Feeling jittery [Recovered/Resolved]

NARRATIVE: CASE EVENT DATE: 200601
